FAERS Safety Report 7481510-X (Version None)
Quarter: 2011Q2

REPORT INFORMATION
  Report Type: 
  Country: None (occurrence: None)
  Receive Date: 20110516
  Receipt Date: 20110427
  Transmission Date: 20111010
  Serious: No
  Sender: FDA-Public Use
  Company Number: US-B.I. PHARMACEUTICALS,INC./RIDGEFIELD-2011-BP-08572BP

PATIENT
  Sex: Female

DRUGS (14)
  1. PRADAXA [Suspect]
     Indication: ATRIAL FIBRILLATION
     Dosage: 300 MG
     Route: 048
     Dates: start: 20110310
  2. FLECAINIDE ACETATE [Concomitant]
     Dosage: 100 MG
  3. CLONAZEPAM [Concomitant]
  4. MELOXICAM [Concomitant]
     Dosage: 7.5 MG
  5. VENLAFAXINE [Concomitant]
  6. EVISTA [Concomitant]
     Dosage: 60 MG
  7. VITAMIN D [Concomitant]
  8. CO Q-10 [Concomitant]
     Dosage: 100 MG
  9. PRADAXA [Suspect]
     Indication: CEREBROVASCULAR ACCIDENT
  10. CALCIUM 600 + D [Concomitant]
  11. LEVOTHROXIN [Concomitant]
     Dosage: 75 MCG
  12. LOSARTAN [Concomitant]
     Dosage: 25 MG
  13. HEMATINIC PL [Concomitant]
  14. CRESTOR [Concomitant]
     Dosage: 5 MG

REACTIONS (1)
  - INCREASED APPETITE [None]
